FAERS Safety Report 21973045 (Version 5)
Quarter: 2023Q2

REPORT INFORMATION
  Report Type: Spontaneous
  Country: DO (occurrence: DO)
  Receive Date: 20230209
  Receipt Date: 20230411
  Transmission Date: 20230722
  Serious: No
  Sender: FDA-Public Use
  Company Number: DO-PFIZER INC-PV202300022615

PATIENT
  Age: 17 Year
  Sex: Male

DRUGS (1)
  1. GENOTROPIN [Suspect]
     Active Substance: SOMATROPIN
     Dosage: 1.5, UNIT: UNKNOWN
     Dates: start: 2021

REACTIONS (2)
  - Drug dose omission by device [Unknown]
  - Device information output issue [Unknown]
